FAERS Safety Report 7989229-3 (Version None)
Quarter: 2011Q4

REPORT INFORMATION
  Report Type: 
  Country: None (occurrence: None)
  Receive Date: 20111216
  Receipt Date: 20111216
  Transmission Date: 20120403
  Serious: No
  Sender: FDA-Public Use
  Company Number: None

PATIENT
  Sex: Female
  Weight: 78.9259 kg

DRUGS (1)
  1. ZETIA [Suspect]
     Indication: BLOOD CHOLESTEROL INCREASED
     Dosage: TABLET 1/DAILY 1/DAILY BY MOUTH
     Route: 048
     Dates: start: 20110622, end: 20110918

REACTIONS (6)
  - SNEEZING [None]
  - BACK PAIN [None]
  - CRYING [None]
  - INSOMNIA [None]
  - CHROMATURIA [None]
  - PAIN [None]
